FAERS Safety Report 9140028 (Version 1)
Quarter: 2013Q1

REPORT INFORMATION
  Report Type: Report from Study
  Country: AU (occurrence: AU)
  Receive Date: 20130305
  Receipt Date: 20130305
  Transmission Date: 20140127
  Serious: Yes (Other)
  Sender: FDA-Public Use
  Company Number: AU-009507513-1302AUS012738

PATIENT
  Age: 72 Year
  Sex: Male
  Weight: 78.75 kg

DRUGS (5)
  1. SIMVASTATIN [Suspect]
     Indication: ACUTE CORONARY SYNDROME
     Dosage: 40 MG, QD
     Dates: start: 20070322
  2. RAMIPRIL [Concomitant]
     Dosage: 2.5 MG, QD
     Route: 048
     Dates: start: 20070316
  3. METOPROLOL [Concomitant]
     Dosage: 25 MG, QD
     Route: 048
     Dates: start: 20110329
  4. CLOPIDOGREL [Concomitant]
     Dosage: TOTAL DAILY DOSE 75
     Route: 048
     Dates: start: 20070316
  5. ASPIRIN [Concomitant]
     Dosage: 150 MG, QD
     Route: 048
     Dates: start: 20070316

REACTIONS (1)
  - Skin lesion [Recovered/Resolved]
